FAERS Safety Report 12348251 (Version 1)
Quarter: 2016Q2

REPORT INFORMATION
  Report Type: Report from Study
  Country: US (occurrence: US)
  Receive Date: 20160509
  Receipt Date: 20160509
  Transmission Date: 20160815
  Serious: Yes (Hospitalization)
  Sender: FDA-Public Use
  Company Number: US-ABBVIE-16K-163-1619290-00

PATIENT
  Age: 75 Year
  Sex: Female
  Weight: 62.2 kg

DRUGS (1)
  1. HUMIRA [Suspect]
     Active Substance: ADALIMUMAB
     Indication: RHEUMATOID ARTHRITIS
     Route: 058
     Dates: start: 2014

REACTIONS (4)
  - Vertigo [Recovered/Resolved]
  - Vomiting [Recovered/Resolved]
  - Intracranial aneurysm [Unknown]
  - Hypotension [Unknown]

NARRATIVE: CASE EVENT DATE: 201604
